FAERS Safety Report 8073122-4 (Version None)
Quarter: 2012Q1

REPORT INFORMATION
  Report Type: 
  Country: None (occurrence: None)
  Receive Date: 20120126
  Receipt Date: 20120117
  Transmission Date: 20120608
  Serious: Yes (Other)
  Sender: FDA-Public Use
  Company Number: DE-JNJFOC-20120107689

PATIENT
  Sex: Male

DRUGS (1)
  1. XARELTO [Suspect]
     Indication: POSTOPERATIVE CARE
     Route: 065
     Dates: start: 20111122, end: 20111130

REACTIONS (1)
  - VENOUS THROMBOSIS LIMB [None]
